FAERS Safety Report 5839241-5 (Version None)
Quarter: 2008Q3

REPORT INFORMATION
  Report Type: 
  Country: None (occurrence: None)
  Receive Date: 20080808
  Receipt Date: 20080729
  Transmission Date: 20090109
  Serious: Yes (Other)
  Sender: FDA-Public Use
  Company Number: IL-PFIZER INC-2008063253

PATIENT
  Age: 68 Year
  Sex: Male

DRUGS (4)
  1. CHANTIX [Suspect]
  2. SIMVASTATIN [Concomitant]
  3. METFORMIN HCL [Concomitant]
  4. PLAVIX [Concomitant]

REACTIONS (1)
  - ISCHAEMIA [None]
